FAERS Safety Report 10049578 (Version 1)
Quarter: 2014Q1

REPORT INFORMATION
  Report Type: Spontaneous
  Country: IT (occurrence: None)
  Receive Date: 20140328
  Receipt Date: 20140328
  Transmission Date: 20141002
  Serious: Yes (Hospitalization)
  Sender: FDA-Public Use
  Company Number: 2014AP002279

PATIENT
  Age: 22 Year
  Sex: Female

DRUGS (7)
  1. PANTOPRAZOLE [Suspect]
     Dates: start: 20140204, end: 20140204
  2. OLANZAPINE (OLANZAPINE) [Suspect]
     Indication: PRODUCT USED FOR UNKNOWN INDICATION
     Dates: start: 20140204, end: 20140204
  3. VALDORM [Suspect]
     Dosage: TOTAL
     Dates: start: 20140204, end: 20140204
  4. PLASIL [Suspect]
     Indication: PRODUCT USED FOR UNKNOWN INDICATION
     Dates: start: 20140204, end: 20140204
  5. SEREUPIN [Suspect]
     Indication: PRODUCT USED FOR UNKNOWN INDICATION
     Dosage: TAB_FILM,
     Dates: start: 20140204, end: 20140204
  6. URSODEOXYCHOLIC ACID [Suspect]
     Indication: PRODUCT USED FOR UNKNOWN INDICATION
     Dates: start: 20140204, end: 20140204
  7. DELORAZEPAM [Suspect]
     Dates: start: 20140204, end: 20140204

REACTIONS (5)
  - Disorientation [None]
  - Eyelid oedema [None]
  - Suicide attempt [None]
  - Drug abuse [None]
  - Sopor [None]
